FAERS Safety Report 7013078-6 (Version None)
Quarter: 2010Q3

REPORT INFORMATION
  Report Type: 
  Country: None (occurrence: None)
  Receive Date: 20100924
  Receipt Date: 20100915
  Transmission Date: 20110219
  Serious: Yes (Other)
  Sender: FDA-Public Use
  Company Number: US-PFIZER INC-2010081218

PATIENT
  Sex: Female
  Weight: 65.8 kg

DRUGS (9)
  1. LIPITOR [Suspect]
     Indication: BLOOD CHOLESTEROL INCREASED
     Dosage: 40 MG, 1X/DAY
     Route: 048
     Dates: start: 19980101
  2. TRICOR [Concomitant]
     Dosage: UNK
  3. ATENOLOL [Concomitant]
     Dosage: UNK
  4. RAMIPRIL [Concomitant]
     Dosage: UNK
  5. SEROQUEL [Concomitant]
     Dosage: UNK
  6. CYCLOBENZAPRINE [Concomitant]
     Dosage: UNK
  7. XANAX [Concomitant]
     Dosage: UNK
  8. SYNTHROID [Concomitant]
     Dosage: UNK
  9. ACETYLSALICYLIC ACID [Concomitant]
     Dosage: UNK

REACTIONS (14)
  - ARTHRALGIA [None]
  - BLOOD TRIGLYCERIDES ABNORMAL [None]
  - BONE PAIN [None]
  - CORONARY ARTERY DISEASE [None]
  - COUGH [None]
  - DYSGEUSIA [None]
  - EYE PRURITUS [None]
  - FATIGUE [None]
  - NASAL CONGESTION [None]
  - PAIN [None]
  - PRODUCT ODOUR ABNORMAL [None]
  - PRODUCT TASTE ABNORMAL [None]
  - PRURITUS [None]
  - RHINORRHOEA [None]
